FAERS Safety Report 21321030 (Version 2)
Quarter: 2022Q4

REPORT INFORMATION
  Report Type: Other
  Country: LB (occurrence: LB)
  Receive Date: 20220912
  Receipt Date: 20221006
  Transmission Date: 20230113
  Serious: Yes (Hospitalization, Other)
  Sender: FDA-Public Use
  Company Number: LB-002147023-NVSC2022LB197290

PATIENT
  Age: 68 Year
  Sex: Female
  Weight: 85 kg

DRUGS (6)
  1. LUCENTIS [Suspect]
     Active Substance: RANIBIZUMAB
     Indication: Diabetic retinal oedema
     Dosage: 20 MILLIGRAM PER MILLILITRE, QD (IN LEFT EYE)
     Route: 050
     Dates: start: 20210926
  2. LUCENTIS [Suspect]
     Active Substance: RANIBIZUMAB
     Dosage: 20 MILLIGRAM PER MILLILITRE, QD (IN RIGHT EYE) (PENDING POST OCT)
     Route: 050
     Dates: start: 20211111
  3. LUCENTIS [Suspect]
     Active Substance: RANIBIZUMAB
     Dosage: UNK
     Route: 065
     Dates: start: 202204
  4. LUCENTIS [Suspect]
     Active Substance: RANIBIZUMAB
     Dosage: UNK
     Route: 065
     Dates: start: 202205
  5. LUCENTIS [Suspect]
     Active Substance: RANIBIZUMAB
     Route: 065
     Dates: start: 202206
  6. VILDAGLIPTIN [Concomitant]
     Active Substance: VILDAGLIPTIN
     Indication: Product used for unknown indication
     Dosage: 1 DOSAGE FORM (50) (GLUCOPHAGE) (TOUJEO)

REACTIONS (3)
  - Cataract [Recovered/Resolved]
  - Eye haemorrhage [Recovered/Resolved]
  - Intentional product misuse [Unknown]

NARRATIVE: CASE EVENT DATE: 20211026
